FAERS Safety Report 5548389-4 (Version None)
Quarter: 2007Q4

REPORT INFORMATION
  Report Type: 
  Country: None (occurrence: None)
  Receive Date: 20071206
  Receipt Date: 20071122
  Transmission Date: 20080405
  Serious: Yes (Death, Other)
  Sender: FDA-Public Use
  Company Number: PHO-2007-052-FU#1

PATIENT
  Age: 65 Year
  Sex: Male

DRUGS (2)
  1. PHOTOFRIN [Suspect]
     Indication: GLIOMA
     Dosage: 2MG/KG INTRAVENOUS 1 ADMINISTRATION
     Route: 042
  2. INTRALIPIDR (LIPID SOLUTION) [Concomitant]

REACTIONS (6)
  - FACIAL PALSY [None]
  - GLIOBLASTOMA MULTIFORME [None]
  - MALIGNANT NEOPLASM PROGRESSION [None]
  - NEOPLASM RECURRENCE [None]
  - SENSORY LOSS [None]
  - TRIGEMINAL NERVE DISORDER [None]
